FAERS Safety Report 9596392 (Version 1)
Quarter: 2013Q4

REPORT INFORMATION
  Report Type: Spontaneous
  Country: US (occurrence: US)
  Receive Date: 20131004
  Receipt Date: 20131004
  Transmission Date: 20140711
  Serious: Yes (Death)
  Sender: FDA-Public Use
  Company Number: US-BAXTER-2013BAX038044

PATIENT
  Age: 10 Year
  Sex: 0

DRUGS (6)
  1. CYCLOPHOSPHAMIDE FOR INJECTION, USP [Suspect]
     Indication: HYPER IGM SYNDROME
     Route: 065
  2. CYCLOPHOSPHAMIDE FOR INJECTION, USP [Suspect]
     Indication: HYPER IGM SYNDROME
  3. BUSULFAN [Suspect]
     Indication: HYPER IGM SYNDROME
     Route: 065
  4. BUSULFAN [Suspect]
     Indication: HYPER IGM SYNDROME
  5. ANTI-THYMOCYTE GLOBULIN [Suspect]
     Indication: HYPER IGM SYNDROME
     Route: 065
  6. ANTI-THYMOCYTE GLOBULIN [Suspect]
     Indication: HYPER IGM SYNDROME

REACTIONS (1)
  - Infection [Fatal]
